FAERS Safety Report 7523806-9 (Version None)
Quarter: 2011Q2

REPORT INFORMATION
  Report Type: 
  Country: None (occurrence: None)
  Receive Date: 20110603
  Receipt Date: 20110526
  Transmission Date: 20111010
  Serious: Yes (Hospitalization)
  Sender: FDA-Public Use
  Company Number: US-SANOFI-AVENTIS-2011SA034382

PATIENT
  Age: 57 Year
  Sex: Male
  Weight: 70 kg

DRUGS (7)
  1. CARVEDILOL [Concomitant]
     Dates: start: 20080715
  2. PLAVIX [Suspect]
     Route: 048
     Dates: start: 20110409
  3. LASIX [Concomitant]
     Dates: start: 20090311
  4. EPLERENONE [Suspect]
     Route: 048
     Dates: start: 20100901
  5. ASPIRIN [Suspect]
     Route: 048
     Dates: start: 20110409
  6. LISINOPRIL [Concomitant]
     Dates: start: 20080715
  7. SIMVASTATIN [Concomitant]
     Dates: start: 20110106

REACTIONS (2)
  - PLEURAL EFFUSION [None]
  - HAEMOPTYSIS [None]
